FAERS Safety Report 19755127 (Version 3)
Quarter: 2024Q2

REPORT INFORMATION
  Report Type: Report from Study
  Country: AR (occurrence: AR)
  Receive Date: 20210827
  Receipt Date: 20240516
  Transmission Date: 20240715
  Serious: Yes (Other)
  Sender: FDA-Public Use
  Company Number: AR-ABBVIE-21K-007-4057836-00

PATIENT
  Age: 73 Year

DRUGS (16)
  1. UPADACITINIB [Suspect]
     Active Substance: UPADACITINIB
     Indication: Rheumatoid arthritis
     Route: 048
     Dates: start: 20201124, end: 202106
  2. ETORICOXIB [Concomitant]
     Active Substance: ETORICOXIB
     Indication: Prophylaxis
     Route: 048
     Dates: start: 20201005
  3. SPIRONOLACTONE [Concomitant]
     Active Substance: SPIRONOLACTONE
     Indication: Hypertension
     Route: 048
     Dates: start: 20210610
  4. Ibandronato [Concomitant]
     Indication: Prophylaxis
     Route: 048
     Dates: start: 20200628
  5. VITAMIN D [Concomitant]
     Active Substance: VITAMIN D NOS
     Indication: Prophylaxis
     Route: 048
     Dates: start: 20200628
  6. VALSARTAN [Concomitant]
     Active Substance: VALSARTAN
     Indication: Hypertension
     Dosage: 80 MILLIGRAM
     Route: 048
     Dates: start: 20110316
  7. RIVAROXABAN [Concomitant]
     Active Substance: RIVAROXABAN
     Indication: Prophylaxis
     Dosage: 20 MILLIGRAM
     Route: 048
     Dates: start: 20210610
  8. OMEPRAZOLE [Concomitant]
     Active Substance: DONEPEZIL HYDROCHLORIDE\OMEPRAZOLE\OMEPRAZOLE MAGNESIUM
     Indication: Prophylaxis
     Dosage: 20 MILLIGRAM
     Route: 048
     Dates: start: 20210610
  9. FOLIC ACID [Concomitant]
     Active Substance: FOLIC ACID
     Indication: Prophylaxis
     Route: 048
     Dates: start: 20200628
  10. FUROSEMIDE [Concomitant]
     Active Substance: FUROSEMIDE
     Indication: Hypertension
     Route: 048
     Dates: start: 20210610
  11. IPRATROPIUM [Concomitant]
     Active Substance: IPRATROPIUM
     Indication: Prophylaxis
     Dosage: 1 INHALATION DAILY
     Route: 055
     Dates: start: 20210610
  12. ROSUVASTATIN [Concomitant]
     Active Substance: ROSUVASTATIN
     Indication: Prophylaxis
     Dosage: 20 MILLIGRAM
     Route: 048
     Dates: start: 20210610
  13. BISOPROLOL [Concomitant]
     Active Substance: BISOPROLOL\BISOPROLOL FUMARATE
     Indication: Hypertension
     Route: 048
     Dates: start: 20210610
  14. LEVOFLOXACIN [Concomitant]
     Active Substance: LEVOFLOXACIN
     Indication: Bronchitis
     Dosage: 500 MILLIGRAM
     Route: 048
     Dates: start: 20210520, end: 20210527
  15. BUDESONIDE\FORMOTEROL [Concomitant]
     Active Substance: BUDESONIDE\FORMOTEROL
     Indication: Prophylaxis
     Route: 055
     Dates: start: 20210610
  16. ALPRAZOLAM [Concomitant]
     Active Substance: ALPRAZOLAM
     Indication: Hypertension
     Dosage: 0.5 MILLIGRAM
     Route: 048
     Dates: start: 20110316

REACTIONS (2)
  - Acute pulmonary oedema [Recovered/Resolved]
  - Atrial fibrillation [Recovered/Resolved]

NARRATIVE: CASE EVENT DATE: 20210608
